FAERS Safety Report 19648017 (Version 1)
Quarter: 2021Q3

REPORT INFORMATION
  Report Type: Report from Study
  Country: CN (occurrence: CN)
  Receive Date: 20210802
  Receipt Date: 20210802
  Transmission Date: 20211014
  Serious: Yes (Hospitalization)
  Sender: FDA-Public Use
  Company Number: CN-KARYOPHARM-2021KPT000968

PATIENT
  Age: 50 Year
  Sex: Female

DRUGS (10)
  1. VALACYCLOVIR HCL [Concomitant]
     Active Substance: VALACYCLOVIR HYDROCHLORIDE
     Indication: HERPES ZOSTER
     Dosage: 0.3 G, 1 IN 1 D
     Route: 048
     Dates: start: 20210707
  2. POTASSIUM CHLORIDE. [Concomitant]
     Active Substance: POTASSIUM CHLORIDE
     Indication: MINERAL SUPPLEMENTATION
     Dosage: 1 G, 2 IN 1 D
     Route: 048
     Dates: start: 20210708
  3. LIPOSOMAL DOXORUBICIN HCL [Concomitant]
     Active Substance: DOXORUBICIN HYDROCHLORIDE
     Indication: PLASMA CELL MYELOMA
     Dosage: 25 MG/M2, 1X/4 WEEKS
     Route: 065
     Dates: start: 20210707
  4. SELINEXOR [Suspect]
     Active Substance: SELINEXOR
     Indication: PLASMA CELL MYELOMA
     Dosage: 80 MG, 1 IN 1 WK
     Route: 048
     Dates: start: 20210707
  5. BICYCLOL [Concomitant]
     Active Substance: BICYCLOL
     Indication: HEPATOBILIARY DISORDER PROPHYLAXIS
     Dosage: 50 MG, 3 IN 1 D
     Route: 048
     Dates: start: 20210708
  6. DEXAMETHASONE. [Concomitant]
     Active Substance: DEXAMETHASONE
     Indication: PLASMA CELL MYELOMA
     Dosage: 40 MG, 1 IN 1 WK
     Route: 042
     Dates: start: 20210707
  7. ONDANSETRON ODT [Concomitant]
     Active Substance: ONDANSETRON
     Indication: PROPHYLAXIS OF NAUSEA AND VOMITING
     Dosage: 8 MG, 1 IN 1 WK
     Route: 048
     Dates: start: 20210708
  8. OMEPRAZOLE AND SODIUM BICARBONATE [Concomitant]
     Active Substance: OMEPRAZOLE\SODIUM BICARBONATE
     Indication: GASTROINTESTINAL DISORDER PROPHYLAXIS
     Dosage: 0.02 G, 2 IN 1 D
     Route: 048
     Dates: start: 20210708
  9. ASPIRIN (E.C.) [Concomitant]
     Active Substance: ASPIRIN
     Indication: THROMBOSIS PROPHYLAXIS
     Dosage: 100 MG, 1 IN 1 D
     Route: 048
     Dates: start: 20210707
  10. SHENG XUE XIAO BAN [Concomitant]
     Indication: PLATELET COUNT DECREASED
     Dosage: 1.8 G, 3 IN 1 D
     Route: 048
     Dates: start: 20210708

REACTIONS (1)
  - Vomiting [Recovering/Resolving]

NARRATIVE: CASE EVENT DATE: 20210714
